FAERS Safety Report 9333019 (Version 1)
Quarter: 2013Q2

REPORT INFORMATION
  Report Type: Spontaneous
  Country: US (occurrence: US)
  Receive Date: 20130606
  Receipt Date: 20130606
  Transmission Date: 20140414
  Serious: No
  Sender: FDA-Public Use
  Company Number: US-009507513-1305USA012779

PATIENT
  Sex: Female

DRUGS (3)
  1. VICTRELIS [Suspect]
     Indication: HEPATITIS C
     Dosage: UNK
     Route: 048
     Dates: start: 201305
  2. RIBAPAK [Suspect]
  3. PEGASYS [Suspect]

REACTIONS (4)
  - Full blood count decreased [Unknown]
  - Headache [Unknown]
  - Fatigue [Unknown]
  - Dry mouth [Unknown]
